FAERS Safety Report 8223843-5 (Version None)
Quarter: 2012Q1

REPORT INFORMATION
  Report Type: 
  Country: None (occurrence: None)
  Receive Date: 20120321
  Receipt Date: 20120309
  Transmission Date: 20120608
  Serious: Yes (Other)
  Sender: FDA-Public Use
  Company Number: US-SHIRE-ALL1-2012-01392

PATIENT
  Sex: Female
  Weight: 72.109 kg

DRUGS (7)
  1. CYMBALTA [Concomitant]
     Indication: DEPRESSION
     Dosage: 60 MG, 1X/DAY:QD
     Route: 048
  2. VYVANSE [Suspect]
     Dosage: 60 MG, 1X/DAY:QD
     Route: 048
     Dates: end: 20120201
  3. VYVANSE [Suspect]
     Indication: ATTENTION DEFICIT/HYPERACTIVITY DISORDER
     Dosage: 60 MG, 1X/DAY:QD
     Route: 048
     Dates: end: 20100101
  4. VYVANSE [Suspect]
     Dosage: 60 MG, 1X/DAY:QD
     Route: 048
     Dates: start: 20100101
  5. SUBOXONE [Concomitant]
     Indication: DRUG DEPENDENCE
     Dosage: 2 MG, OTHER (ONE TABLET EVERY OTHER DAY)
     Route: 048
     Dates: start: 20090101
  6. VYVANSE [Suspect]
     Dosage: UNK, 1X/DAY:QD
     Route: 048
  7. VITAMIN B12                        /00056201/ [Concomitant]
     Indication: VITAMIN SUPPLEMENTATION
     Dosage: 500 MG, 4X/DAY:QID
     Route: 048

REACTIONS (9)
  - INSOMNIA [None]
  - IRRITABILITY [None]
  - LETHARGY [None]
  - DRUG EFFECT DECREASED [None]
  - DRUG DOSE OMISSION [None]
  - OBSESSIVE-COMPULSIVE DISORDER [None]
  - DEPRESSION [None]
  - LOGORRHOEA [None]
  - DRUG EFFECT INCREASED [None]
